FAERS Safety Report 21097513 (Version 1)
Quarter: 2022Q3

REPORT INFORMATION
  Report Type: Spontaneous
  Country: TR (occurrence: TR)
  Receive Date: 20220719
  Receipt Date: 20220719
  Transmission Date: 20221026
  Serious: Yes (Other)
  Sender: FDA-Public Use
  Company Number: TR-NOVARTISPH-NVSC2022TR137354

PATIENT
  Age: 85 Year
  Sex: Female

DRUGS (1)
  1. EXELON [Suspect]
     Active Substance: RIVASTIGMINE TARTRATE
     Indication: Dementia
     Dosage: 13.3 MG, QD, (PATCH 15 (CM2), 27 MG RIVASTIGMINE BASE), 5 YEARS
     Route: 062

REACTIONS (4)
  - Dementia [Unknown]
  - Disease recurrence [Unknown]
  - Product supply issue [Unknown]
  - Product dose omission issue [Unknown]
